FAERS Safety Report 9682623 (Version 9)
Quarter: 2014Q2

REPORT INFORMATION
  Report Type: Spontaneous
  Country: US (occurrence: US)
  Receive Date: 20131112
  Receipt Date: 20140626
  Transmission Date: 20141212
  Serious: Yes (Hospitalization, Other)
  Sender: FDA-Public Use
  Company Number: US-JNJFOC-20131018131

PATIENT
  Age: 48 Year
  Sex: Female
  Weight: 68.04 kg

DRUGS (11)
  1. EXTRA STRENGTH TYLENOL [Suspect]
     Route: 048
  2. EXTRA STRENGTH TYLENOL [Suspect]
     Indication: BACK PAIN
     Dosage: EVERY FOUR TO SIX HOURS, APPROXIMATELY 8 TABLETS A DAY
     Route: 048
     Dates: start: 2000, end: 201010
  3. TYLENOL REGULAR STRENGTH [Suspect]
     Route: 048
  4. TYLENOL REGULAR STRENGTH [Suspect]
     Indication: BACK PAIN
     Dosage: EVERY FOUR TO SIX HOURS, APPROXIMATELY 8 TABLETS A DAY
     Route: 048
     Dates: start: 2000, end: 2010
  5. HYDROCODONE WITH ACETAMINOPHEN [Suspect]
     Indication: PRODUCT USED FOR UNKNOWN INDICATION
     Route: 065
     Dates: start: 2000, end: 201010
  6. PROPOXYPHENE WITH ACETAMINOPHEN [Suspect]
     Indication: PRODUCT USED FOR UNKNOWN INDICATION
     Route: 065
     Dates: start: 2000, end: 201010
  7. LORTAB [Suspect]
     Indication: BACK PAIN
     Dosage: EIGHT TABLETS DAILY
     Route: 048
     Dates: start: 1995, end: 201010
  8. LISINOPRIL [Concomitant]
     Indication: PRODUCT USED FOR UNKNOWN INDICATION
     Route: 065
  9. ADVAIR [Concomitant]
     Indication: PRODUCT USED FOR UNKNOWN INDICATION
     Route: 065
  10. ALBUTEROL [Concomitant]
     Indication: PRODUCT USED FOR UNKNOWN INDICATION
     Route: 055
  11. SEREVENT DISKUS [Concomitant]
     Indication: PRODUCT USED FOR UNKNOWN INDICATION
     Route: 055

REACTIONS (8)
  - Hyperglycaemia [Recovered/Resolved]
  - Overdose [Unknown]
  - Toxicity to various agents [Unknown]
  - Hepatic failure [Recovered/Resolved]
  - Renal failure [Recovered/Resolved]
  - Respiratory failure [Recovered/Resolved]
  - Hepatic necrosis [Unknown]
  - Hepatic encephalopathy [Recovering/Resolving]
